FAERS Safety Report 25583464 (Version 1)
Quarter: 2025Q3

REPORT INFORMATION
  Report Type: Spontaneous
  Country: EU (occurrence: EU)
  Receive Date: 20250721
  Receipt Date: 20250721
  Transmission Date: 20251021
  Serious: Yes (Other)
  Sender: CELLTRION
  Company Number: EU-AMGEN-FRASP2025050521

PATIENT

DRUGS (18)
  1. ADALIMUMAB [Suspect]
     Active Substance: ADALIMUMAB
     Indication: PSTPIP1-associated myeloid-related proteinaemia inflammatory syndrome
     Dosage: 24 MILLIGRAM/SQ. METER, Q2WK
     Route: 058
  2. USTEKINUMAB [Suspect]
     Active Substance: USTEKINUMAB
     Indication: PSTPIP1-associated myeloid-related proteinaemia inflammatory syndrome
     Dosage: 2 MILLIGRAM/KILOGRAM, Q2WK
     Route: 058
  3. INFLIXIMAB [Suspect]
     Active Substance: INFLIXIMAB
     Indication: PSTPIP1-associated myeloid-related proteinaemia inflammatory syndrome
     Dosage: 6 MILLIGRAM/KILOGRAM, Q4WK
     Route: 042
  4. RITUXIMAB [Suspect]
     Active Substance: RITUXIMAB
     Indication: Product used for unknown indication
  5. FILGRASTIM [Suspect]
     Active Substance: FILGRASTIM
     Indication: Neutropenia
     Route: 065
  6. FILGRASTIM [Suspect]
     Active Substance: FILGRASTIM
     Indication: PSTPIP1-associated myeloid-related proteinaemia inflammatory syndrome
  7. TOCILIZUMAB [Suspect]
     Active Substance: TOCILIZUMAB
     Indication: PSTPIP1-associated myeloid-related proteinaemia inflammatory syndrome
     Dosage: 12 MILLIGRAM/SQ. METER, Q2WK
     Route: 042
  8. ETANERCEPT [Suspect]
     Active Substance: ETANERCEPT
     Indication: PSTPIP1-associated myeloid-related proteinaemia inflammatory syndrome
     Dosage: 0.8 MILLIGRAM/KILOGRAM, QWK
     Route: 058
  9. ANAKINRA [Suspect]
     Active Substance: ANAKINRA
     Indication: PSTPIP1-associated myeloid-related proteinaemia inflammatory syndrome
     Route: 058
  10. GOLIMUMAB [Suspect]
     Active Substance: GOLIMUMAB
     Indication: PSTPIP1-associated myeloid-related proteinaemia inflammatory syndrome
     Dosage: 5 MILLIGRAM/KILOGRAM, Q4WK
     Route: 058
  11. INTERLEUKIN-1 BETA [Concomitant]
     Indication: PSTPIP1-associated myeloid-related proteinaemia inflammatory syndrome
     Route: 065
  12. CANAKINUMAB [Concomitant]
     Active Substance: CANAKINUMAB
     Dosage: 10 MILLIGRAM/KILOGRAM, Q4WK
     Route: 058
  13. CANAKINUMAB [Concomitant]
     Active Substance: CANAKINUMAB
     Route: 058
  14. CYCLOSPORINE [Concomitant]
     Active Substance: CYCLOSPORINE
     Indication: Prophylaxis
     Route: 065
  15. TREOSULFAN [Concomitant]
     Active Substance: TREOSULFAN
     Route: 065
  16. THIOTEPA [Concomitant]
     Active Substance: THIOTEPA
     Route: 065
  17. FLUDARABINE [Concomitant]
     Active Substance: FLUDARABINE PHOSPHATE
     Route: 065
  18. ALEMTUZUMAB [Concomitant]
     Active Substance: ALEMTUZUMAB
     Route: 065

REACTIONS (5)
  - PSTPIP1-associated myeloid-related proteinaemia inflammatory syndrome [Unknown]
  - Adverse event [Unknown]
  - Off label use [Unknown]
  - Therapeutic product effect incomplete [Unknown]
  - Intentional product use issue [Unknown]
